FAERS Safety Report 4530184-6 (Version None)
Quarter: 2004Q4

REPORT INFORMATION
  Report Type: 
  Country: None (occurrence: None)
  Receive Date: 20041215
  Receipt Date: 20041130
  Transmission Date: 20050328
  Serious: Yes (Hospitalization)
  Sender: FDA-Public Use
  Company Number: 2004BI000547

PATIENT
  Age: 43 Year
  Sex: Female
  Weight: 151.0478 kg

DRUGS (1)
  1. AVONEX [Suspect]
     Indication: MULTIPLE SCLEROSIS
     Dosage: 30 UG; QW; IM
     Route: 030
     Dates: start: 20040902

REACTIONS (4)
  - LIGAMENT INJURY [None]
  - PYREXIA [None]
  - WALKING AID USER [None]
  - WHEELCHAIR USER [None]
